FAERS Safety Report 19775203 (Version 2)
Quarter: 2022Q2

REPORT INFORMATION
  Report Type: Spontaneous
  Country: US (occurrence: None)
  Receive Date: 20210901
  Receipt Date: 20220419
  Transmission Date: 20220721
  Serious: Yes (Other)
  Sender: FDA-Public Use
  Company Number: 2021A699037

PATIENT
  Age: 81 Year
  Sex: Female

DRUGS (26)
  1. OMEPRAZOLE [Suspect]
     Active Substance: OMEPRAZOLE
     Indication: Gastrooesophageal reflux disease
     Route: 065
     Dates: end: 2016
  2. PREVACID [Suspect]
     Active Substance: LANSOPRAZOLE
     Indication: Gastrooesophageal reflux disease
     Route: 065
     Dates: start: 2015, end: 2019
  3. PREVACID 24 HR [Suspect]
     Active Substance: LANSOPRAZOLE
     Indication: Gastrooesophageal reflux disease
     Dosage: SUGGESTED DOSE
     Route: 065
     Dates: start: 2015, end: 2019
  4. LISINOPRIL [Concomitant]
     Active Substance: LISINOPRIL
     Indication: Blood pressure abnormal
  5. PRAVASTATIN [Concomitant]
     Active Substance: PRAVASTATIN
     Indication: Blood cholesterol abnormal
  6. FAMOTIDINE [Concomitant]
     Active Substance: FAMOTIDINE
     Dates: start: 2019
  7. AMLODIPINE [Concomitant]
     Active Substance: AMLODIPINE BESYLATE
  8. DICYCLOMINE [Concomitant]
     Active Substance: DICYCLOMINE HYDROCHLORIDE
  9. HYDROCHLOROTHIAZIDE [Concomitant]
     Active Substance: HYDROCHLOROTHIAZIDE
  10. GLIPIZIDE [Concomitant]
     Active Substance: GLIPIZIDE
  11. TRAMADOL [Concomitant]
     Active Substance: TRAMADOL
  12. PROBIOTICS NOS [Concomitant]
     Active Substance: PROBIOTICS NOS
  13. TEMAZEPAM [Concomitant]
     Active Substance: TEMAZEPAM
  14. VITAMIN D3 [Concomitant]
     Active Substance: CHOLECALCIFEROL
  15. WARFARIN [Concomitant]
     Active Substance: WARFARIN
  16. NIFEDIPINE [Concomitant]
     Active Substance: NIFEDIPINE
  17. CARVEDILOL [Concomitant]
     Active Substance: CARVEDILOL
  18. ELIQUIS [Concomitant]
     Active Substance: APIXABAN
  19. FOLIC ACID [Concomitant]
     Active Substance: FOLIC ACID
  20. CARDEZIM [Concomitant]
  21. SERTRALINE [Concomitant]
     Active Substance: SERTRALINE HYDROCHLORIDE
  22. HYDRALAZINE [Concomitant]
     Active Substance: HYDRALAZINE HYDROCHLORIDE
  23. MIRCERA [Concomitant]
     Active Substance: METHOXY POLYETHYLENE GLYCOL-EPOETIN BETA
  24. VENOFER [Concomitant]
     Active Substance: IRON SUCROSE
  25. SUCRALFATE [Concomitant]
     Active Substance: SUCRALFATE
  26. NORCO [Concomitant]
     Active Substance: ACETAMINOPHEN\HYDROCODONE BITARTRATE

REACTIONS (7)
  - Chronic kidney disease [Not Recovered/Not Resolved]
  - Renal failure [Unknown]
  - Acute kidney injury [Unknown]
  - End stage renal disease [Unknown]
  - Nephrogenic anaemia [Unknown]
  - Chronic kidney disease-mineral and bone disorder [Unknown]
  - Diabetic nephropathy [Unknown]

NARRATIVE: CASE EVENT DATE: 20170101
